FAERS Safety Report 19086089 (Version 3)
Quarter: 2021Q2

REPORT INFORMATION
  Report Type: Spontaneous
  Country: CA (occurrence: CA)
  Receive Date: 20210402
  Receipt Date: 20210427
  Transmission Date: 20210717
  Serious: Yes (Other)
  Sender: FDA-Public Use
  Company Number: CA-PFIZER INC-2021337243

PATIENT
  Age: 48 Year
  Sex: Female

DRUGS (4)
  1. XELJANZ [Suspect]
     Active Substance: TOFACITINIB CITRATE
     Dosage: 5 MG, 2X/DAY
     Route: 048
  2. METHOTREXATE. [Concomitant]
     Active Substance: METHOTREXATE
     Dosage: 1 DF
     Route: 065
  3. XELJANZ [Suspect]
     Active Substance: TOFACITINIB CITRATE
     Dosage: 5 MG, 1X/DAY
     Route: 048
  4. XELJANZ [Suspect]
     Active Substance: TOFACITINIB CITRATE
     Indication: RHEUMATOID ARTHRITIS
     Dosage: 5 MG, 2X/DAY
     Route: 048

REACTIONS (17)
  - Nausea [Recovered/Resolved]
  - Pyrexia [Recovered/Resolved]
  - Lymphatic obstruction [Recovered/Resolved]
  - Peripheral swelling [Unknown]
  - Therapeutic product effect incomplete [Unknown]
  - Fatigue [Unknown]
  - Night sweats [Recovered/Resolved]
  - Joint swelling [Not Recovered/Not Resolved]
  - Weight increased [Recovering/Resolving]
  - Headache [Unknown]
  - Fluid retention [Unknown]
  - Angioedema [Recovering/Resolving]
  - Skin hypertrophy [Recovered/Resolved]
  - Emotional distress [Unknown]
  - Swelling face [Unknown]
  - Synovial cyst [Unknown]
  - Polyuria [Unknown]
